FAERS Safety Report 10196850 (Version 2)
Quarter: 2014Q2

REPORT INFORMATION
  Report Type: Spontaneous
  Country: BR (occurrence: BR)
  Receive Date: 20140527
  Receipt Date: 20140527
  Transmission Date: 20141212
  Serious: Yes (Hospitalization)
  Sender: FDA-Public Use
  Company Number: BR-UCBSA-121078

PATIENT
  Age: 69 Year
  Sex: Female

DRUGS (16)
  1. CIMZIA [Suspect]
     Indication: RHEUMATOID ARTHRITIS
     Dosage: DRUG STRENGTH: 200 MG/ML
     Dates: start: 20140221, end: 20140321
  2. OMEPRAZOLE [Suspect]
     Indication: PROPHYLAXIS
     Dosage: DRUG STRENGTH: 20 MG. DAILY
     Route: 048
     Dates: start: 2012
  3. SELOZOK [Suspect]
     Indication: HYPERTENSION
     Dosage: DRUG STRENGTH: 50 MG. DAILY
     Dates: start: 2012
  4. GLIFAGE [Suspect]
     Indication: DIABETES MELLITUS
     Dosage: DRUG STRENGTH: 850 MG
     Dates: start: 2012
  5. CALCIUM [Concomitant]
     Indication: OSTEOPOROSIS PROPHYLAXIS
     Dates: start: 2012
  6. LOSARTAN [Concomitant]
     Indication: HYPERTENSION
     Dosage: DRUG STRENGTH: 50 MG
     Dates: start: 2012
  7. PREDNISONE [Concomitant]
     Dosage: DRUG STRENGTH: 5 MG
     Dates: start: 2012
  8. PURAN T4 [Concomitant]
     Indication: THYROID DISORDER
     Dosage: DRUG STRENGTH: 100 MCG
     Dates: start: 2012
  9. ETANOZETE [Concomitant]
  10. MELOXICAM [Concomitant]
     Dosage: DRUG STRENGTH: 15 MG
     Dates: start: 2012
  11. LEFLUNOMIDE [Concomitant]
     Indication: RHEUMATOID ARTHRITIS
     Dosage: 20MG
     Dates: start: 2012
  12. ARAVA [Concomitant]
  13. ALENDRONATE SODIUM [Concomitant]
     Indication: OSTEOPOROSIS PROPHYLAXIS
     Dosage: 70MG
     Dates: start: 2012
  14. VITAMIN E [Concomitant]
  15. VITAMIN D3 [Concomitant]
     Indication: OSTEOPOROSIS PROPHYLAXIS
     Dates: start: 2012
  16. MIRTAX [Concomitant]
     Indication: MUSCLE RELAXANT THERAPY

REACTIONS (3)
  - Herpes virus infection [Recovering/Resolving]
  - Pruritus [Recovered/Resolved]
  - Dry skin [Not Recovered/Not Resolved]
